FAERS Safety Report 23816550 (Version 1)
Quarter: 2024Q2

REPORT INFORMATION
  Report Type: Report from Study
  Country: CA (occurrence: CA)
  Receive Date: 20240503
  Receipt Date: 20240503
  Transmission Date: 20240716
  Serious: Yes (Death)
  Sender: FDA-Public Use
  Company Number: CA-TAIHO-2023-000005

PATIENT
  Age: 74 Year
  Sex: Female

DRUGS (1)
  1. LONSURF [Suspect]
     Active Substance: TIPIRACIL HYDROCHLORIDE\TRIFLURIDINE
     Indication: Colorectal cancer metastatic
     Dosage: DOSE, FREQUENCY AND FORM STRENGTH UNKNOWN?CYCLE 1
     Route: 048
     Dates: start: 20221226, end: 20230316

REACTIONS (4)
  - Death [Fatal]
  - Nausea [Unknown]
  - Dyspepsia [Unknown]
  - Disease progression [Unknown]

NARRATIVE: CASE EVENT DATE: 20221228
